FAERS Safety Report 7653875-7 (Version None)
Quarter: 2011Q3

REPORT INFORMATION
  Report Type: 
  Country: None (occurrence: None)
  Receive Date: 20110727
  Receipt Date: 20101029
  Transmission Date: 20111222
  Serious: Yes (Hospitalization)
  Sender: FDA-Public Use
  Company Number: OMPQ-PR-1010S-0950

PATIENT
  Sex: Male

DRUGS (1)
  1. OMNIPAQUE 70 [Suspect]
     Indication: PRODUCT USED FOR UNKNOWN INDICATION
     Dosage: 10 ML, SINGLE DOSE, INTRATHECAL
     Route: 037
     Dates: start: 20101025, end: 20101025

REACTIONS (1)
  - MENINGITIS BACTERIAL [None]
